FAERS Safety Report 6121911-5 (Version None)
Quarter: 2009Q1

REPORT INFORMATION
  Report Type: 
  Country: None (occurrence: None)
  Receive Date: 20090313
  Receipt Date: 20090226
  Transmission Date: 20090719
  Serious: Yes (Hospitalization)
  Sender: FDA-Public Use
  Company Number: 2009S1003553

PATIENT
  Age: 40 Year
  Sex: Male

DRUGS (4)
  1. LAMOTRIGINE [Suspect]
     Indication: CONVULSION
     Dosage: 100 MG; TWICE A DAY; ORAL
     Route: 048
  2. ONDANSETRON HCL [Suspect]
     Indication: DRUG USE FOR UNKNOWN INDICATION
     Dosage: 8 MG; DAILY; INTRAVENOUS
     Route: 042
     Dates: start: 20090217
  3. DEXAMETHASONE TAB [Suspect]
     Indication: DRUG USE FOR UNKNOWN INDICATION
     Dosage: 8 MG; DAILY; INTRAVENOUS
     Route: 042
     Dates: start: 20090217
  4. CARBOPLATIN [Suspect]
     Indication: SEMINOMA
     Dosage: 630 MG; TWICE A DAY; ORAL
     Route: 048
     Dates: start: 20090217

REACTIONS (2)
  - CONVULSION [None]
  - DRUG INTERACTION [None]
